FAERS Safety Report 9340030 (Version 1)
Quarter: 2013Q2

REPORT INFORMATION
  Report Type: Spontaneous
  Country: US (occurrence: None)
  Receive Date: 20130607
  Receipt Date: 20130607
  Transmission Date: 20140414
  Serious: No
  Sender: FDA-Public Use
  Company Number: None

PATIENT
  Age: 73 Year
  Sex: Male

DRUGS (1)
  1. ICLUSIG [Suspect]
     Dosage: 15MG QD PO
     Route: 048
     Dates: start: 20130522

REACTIONS (2)
  - Constipation [None]
  - Chills [None]
